FAERS Safety Report 6071167-7 (Version None)
Quarter: 2009Q1

REPORT INFORMATION
  Report Type: 
  Country: None (occurrence: None)
  Receive Date: 20090209
  Receipt Date: 20090129
  Transmission Date: 20090719
  Serious: Yes (Hospitalization, Other)
  Sender: FDA-Public Use
  Company Number: JP-ASTRAZENECA-2009AP00795

PATIENT
  Age: 83 Year
  Sex: Female

DRUGS (2)
  1. ARIMIDEX [Suspect]
     Indication: BREAST CANCER
     Route: 048
     Dates: start: 20081208, end: 20081218
  2. LOXONIN [Concomitant]
     Dosage: AS REQUIRED.
     Route: 048
     Dates: start: 20081121

REACTIONS (1)
  - HAEMATOMA [None]
